FAERS Safety Report 6486442-1 (Version None)
Quarter: 2009Q4

REPORT INFORMATION
  Report Type: 
  Country: None (occurrence: None)
  Receive Date: 20091210
  Receipt Date: 20091201
  Transmission Date: 20100525
  Serious: Yes (Hospitalization)
  Sender: FDA-Public Use
  Company Number: NL-ASTRAZENECA-2009SE29437

PATIENT
  Age: 76 Year
  Sex: Female

DRUGS (1)
  1. NEXIUM [Suspect]
     Indication: PEPTIC ULCER

REACTIONS (2)
  - HYPOCALCAEMIA [None]
  - HYPOMAGNESAEMIA [None]
